FAERS Safety Report 17896726 (Version 2)
Quarter: 2020Q3

REPORT INFORMATION
  Report Type: Spontaneous
  Country: US (occurrence: US)
  Receive Date: 20200615
  Receipt Date: 20200909
  Transmission Date: 20201103
  Serious: Yes (Hospitalization)
  Sender: FDA-Public Use
  Company Number: US-ALLERGAN-2022808US

PATIENT
  Sex: Male
  Weight: 63.5 kg

DRUGS (6)
  1. HYDROCHLOROTHIAZIDE UNK [Suspect]
     Active Substance: HYDROCHLOROTHIAZIDE
     Indication: PERIPHERAL SWELLING
     Dosage: UNK
     Dates: start: 20200219, end: 20200315
  2. ROPINIROLE. [Concomitant]
     Active Substance: ROPINIROLE
  3. CLONAZEPAM. [Concomitant]
     Active Substance: CLONAZEPAM
  4. AMANTADINE. [Suspect]
     Active Substance: AMANTADINE HYDROCHLORIDE
     Indication: DYSKINESIA
     Dosage: 274 MG, QPM
     Dates: start: 20191125, end: 20200321
  5. AMANTADINE. [Suspect]
     Active Substance: AMANTADINE HYDROCHLORIDE
     Indication: PARKINSON^S DISEASE
     Dosage: 137 MG, QD
     Dates: start: 20191118, end: 20191124
  6. CARBIDOPA/LEVODOPA [Concomitant]
     Active Substance: CARBIDOPA\LEVODOPA

REACTIONS (23)
  - Dysstasia [Unknown]
  - Peripheral swelling [Recovering/Resolving]
  - Contusion [Unknown]
  - Fluid retention [Not Recovered/Not Resolved]
  - Fall [Recovered/Resolved]
  - Confusional state [Not Recovered/Not Resolved]
  - Hallucination, visual [Recovered/Resolved]
  - Insomnia [Unknown]
  - Prostatic specific antigen increased [Unknown]
  - Gait disturbance [Not Recovered/Not Resolved]
  - Blood sodium decreased [Recovering/Resolving]
  - Meniscus injury [Unknown]
  - Vertigo [Not Recovered/Not Resolved]
  - Delusion [Unknown]
  - Loss of personal independence in daily activities [Not Recovered/Not Resolved]
  - Delirium [Not Recovered/Not Resolved]
  - Rib fracture [Recovered/Resolved]
  - Device power source issue [Unknown]
  - Livedo reticularis [Not Recovered/Not Resolved]
  - Pollakiuria [Not Recovered/Not Resolved]
  - Balance disorder [Unknown]
  - Skin abrasion [Unknown]
  - Dizziness [Unknown]

NARRATIVE: CASE EVENT DATE: 202003
